FAERS Safety Report 5956367-6 (Version None)
Quarter: 2008Q4

REPORT INFORMATION
  Report Type: 
  Country: None (occurrence: None)
  Receive Date: 20081112
  Receipt Date: 20081030
  Transmission Date: 20090506
  Serious: Yes (Death)
  Sender: FDA-Public Use
  Company Number: 2008AL011500

PATIENT
  Sex: Male

DRUGS (1)
  1. DIGOXIN [Suspect]
     Indication: CARDIAC FAILURE CONGESTIVE
     Dosage: PO
     Route: 048

REACTIONS (11)
  - ANXIETY [None]
  - BRADYCARDIA [None]
  - CARDIAC DISORDER [None]
  - DIZZINESS [None]
  - DRUG INEFFECTIVE [None]
  - ECONOMIC PROBLEM [None]
  - EMOTIONAL DISTRESS [None]
  - HYPOTENSION [None]
  - INJURY [None]
  - PAIN [None]
  - THERAPEUTIC AGENT TOXICITY [None]
